FAERS Safety Report 9233494 (Version 1)
Quarter: 2013Q2

REPORT INFORMATION
  Report Type: Spontaneous
  Country: FR (occurrence: FR)
  Receive Date: 20130416
  Receipt Date: 20130416
  Transmission Date: 20140414
  Serious: Yes (Other)
  Sender: FDA-Public Use
  Company Number: FR-BRISTOL-MYERS SQUIBB COMPANY-18764092

PATIENT
  Sex: 0

DRUGS (1)
  1. SPRYCEL [Suspect]

REACTIONS (1)
  - Lymphadenopathy [Unknown]
